FAERS Safety Report 25318969 (Version 1)
Quarter: 2025Q2

REPORT INFORMATION
  Report Type: Spontaneous
  Country: US (occurrence: None)
  Receive Date: 20250514
  Receipt Date: 20250514
  Transmission Date: 20250717
  Serious: Yes (Other)
  Sender: FDA-CTU
  Company Number: None

PATIENT
  Age: 84 Year
  Sex: Female
  Weight: 50.4 kg

DRUGS (1)
  1. LEQEMBI [Suspect]
     Active Substance: LECANEMAB-IRMB
     Indication: Dementia Alzheimer^s type
     Route: 042
     Dates: start: 20250314, end: 20250429

REACTIONS (2)
  - Amyloid related imaging abnormality-microhaemorrhages and haemosiderin deposits [None]
  - Amyloid related imaging abnormality-oedema/effusion [None]

NARRATIVE: CASE EVENT DATE: 20250429
